FAERS Safety Report 16817977 (Version 6)
Quarter: 2020Q1

REPORT INFORMATION
  Report Type: Spontaneous
  Country: DE (occurrence: DE)
  Receive Date: 20190917
  Receipt Date: 20200304
  Transmission Date: 20200409
  Serious: Yes (Hospitalization, Other)
  Sender: FDA-Public Use
  Company Number: DE-MYLANLABS-2019M1086309

PATIENT
  Sex: Female
  Weight: 90 kg

DRUGS (40)
  1. PACLITAXEL. [Suspect]
     Active Substance: PACLITAXEL
     Dosage: 80 MILLIGRAM/SQ. METER, TOTAL
     Route: 065
     Dates: start: 20190522, end: 20190522
  2. MAGNESIUM [Concomitant]
     Active Substance: MAGNESIUM
     Indication: PRODUCT USED FOR UNKNOWN INDICATION
     Dosage: UNK UNK, QD (5 MMOL/5G, QD (MAGNESIUM ION, BAG))
     Route: 065
  3. PANTOZLE [Concomitant]
     Active Substance: PANTOPRAZOLE SODIUM
     Indication: PRODUCT USED FOR UNKNOWN INDICATION
     Dosage: 20 MILLIGRAM, QD (MORNING)
     Route: 065
  4. CALCIUM [Concomitant]
     Active Substance: CALCIUM
     Indication: PRODUCT USED FOR UNKNOWN INDICATION
     Dosage: 500 MILLIGRAM, QD (MORNING)
     Route: 065
  5. CYCLOPHOSPHAMID [Suspect]
     Active Substance: CYCLOPHOSPHAMIDE
     Dosage: 600 MILLIGRAM/SQ. METER, TOTAL
     Route: 065
     Dates: start: 20190321, end: 20190321
  6. PACLITAXEL. [Suspect]
     Active Substance: PACLITAXEL
     Dosage: 80 MILLIGRAM/SQ. METER, TOTAL
     Route: 065
     Dates: start: 20190711, end: 20190711
  7. PACLITAXEL. [Suspect]
     Active Substance: PACLITAXEL
     Dosage: 80 MILLIGRAM/SQ. METER, TOTAL
     Route: 065
     Dates: start: 20190529, end: 20190529
  8. BISOPROLOL                         /01166101/ [Concomitant]
     Active Substance: BISOPROLOL FUMARATE\HYDROCHLOROTHIAZIDE
     Dosage: 5 MILLIGRAM, QD (2.5 MG, BID (MORNING AND EVENING))
     Route: 065
  9. JODID [Concomitant]
     Active Substance: IODINE
     Indication: PRODUCT USED FOR UNKNOWN INDICATION
     Dosage: 200 MILLIGRAM, QD (MORNING)
     Route: 065
  10. EPIRUBICIN                         /00699302/ [Suspect]
     Active Substance: EPIRUBICIN
     Indication: BREAST CANCER
     Dosage: 90 MILLIGRAM/SQ. METER, TOTAL
     Route: 065
     Dates: start: 20190207, end: 20190207
  11. EPIRUBICIN                         /00699302/ [Suspect]
     Active Substance: EPIRUBICIN
     Dosage: 90 MILLIGRAM/SQ. METER, TOTAL
     Route: 065
     Dates: start: 20190228, end: 20190228
  12. TELMISARTAN. [Concomitant]
     Active Substance: TELMISARTAN
     Dosage: 80 MG, ONCE IN THE EVENING
     Route: 065
     Dates: start: 201804
  13. CRATAEGUTT [Concomitant]
     Indication: PRODUCT USED FOR UNKNOWN INDICATION
     Dosage: 450 MILLIGRAM, UNK
     Route: 065
     Dates: start: 201607, end: 201905
  14. BISOPROLOL [Concomitant]
     Active Substance: BISOPROLOL
     Indication: PRODUCT USED FOR UNKNOWN INDICATION
     Dosage: DOSE CHANGED
     Route: 065
  15. EPIRUBICIN                         /00699302/ [Suspect]
     Active Substance: EPIRUBICIN
     Dosage: 90 MILLIGRAM/SQ. METER, TOTAL
     Route: 065
     Dates: start: 20190411, end: 20190411
  16. PACLITAXEL. [Suspect]
     Active Substance: PACLITAXEL
     Dosage: 80 MILLIGRAM/SQ. METER, TOTAL
     Route: 065
     Dates: start: 20190607, end: 20190607
  17. CLOPIDOGREL [Concomitant]
     Active Substance: CLOPIDOGREL BISULFATE
     Indication: PRODUCT USED FOR UNKNOWN INDICATION
     Dosage: UNK
     Route: 065
     Dates: start: 201707, end: 201808
  18. ASPIRIN. [Concomitant]
     Active Substance: ASPIRIN
     Indication: PRODUCT USED FOR UNKNOWN INDICATION
     Dosage: 100 MILLIGRAM
     Route: 065
     Dates: start: 201412, end: 201905
  19. EPIRUBICIN                         /00699302/ [Suspect]
     Active Substance: EPIRUBICIN
     Dosage: 90 MILLIGRAM/SQ. METER, TOTAL
     Route: 065
     Dates: start: 20190321, end: 20190321
  20. BISOPROLOL                         /01166101/ [Concomitant]
     Active Substance: BISOPROLOL FUMARATE\HYDROCHLOROTHIAZIDE
     Indication: PRODUCT USED FOR UNKNOWN INDICATION
     Dosage: 2.5 MILLIGRAM
     Route: 065
     Dates: start: 201707, end: 201905
  21. TELMISARTAN. [Concomitant]
     Active Substance: TELMISARTAN
     Indication: HYPERTENSION
     Dosage: 40 MILLIGRAM, PRN (ADD NEEDED)
     Route: 065
  22. METAMIZOLE [Concomitant]
     Active Substance: METAMIZOLE
     Indication: PAIN
     Dosage: 30 DROPS OF SOLUTION WITH 500 MG/ML, UP TO 4 TIMES PRN
     Route: 065
  23. MONTELUKAST [Concomitant]
     Active Substance: MONTELUKAST SODIUM
     Indication: PRODUCT USED FOR UNKNOWN INDICATION
     Dosage: 20 MILLIGRAM, QD (EVENING)
     Route: 065
  24. LEVOTHYROXINE. [Concomitant]
     Active Substance: LEVOTHYROXINE
     Indication: PRODUCT USED FOR UNKNOWN INDICATION
     Dosage: 150 MICROGRAM, QD (MORNING)
     Route: 065
  25. IBUPROFEN. [Concomitant]
     Active Substance: IBUPROFEN
     Indication: PRODUCT USED FOR UNKNOWN INDICATION
     Dosage: 400 MILLIGRAM, PRN (AS NEEDED)
     Route: 065
  26. CYCLOPHOSPHAMID [Suspect]
     Active Substance: CYCLOPHOSPHAMIDE
     Dosage: 600 MILLIGRAM/SQ. METER, TOTAL
     Route: 065
     Dates: start: 20190228, end: 20190228
  27. PACLITAXEL. [Suspect]
     Active Substance: PACLITAXEL
     Dosage: 80 MILLIGRAM/SQ. METER, TOTAL
     Route: 065
     Dates: start: 20190614, end: 20190614
  28. PACLITAXEL. [Suspect]
     Active Substance: PACLITAXEL
     Dosage: 80 MILLIGRAM/SQ. METER, TOTAL
     Route: 065
     Dates: start: 20190621, end: 20190621
  29. ATORVASTATIN [Concomitant]
     Active Substance: ATORVASTATIN
     Indication: PRODUCT USED FOR UNKNOWN INDICATION
     Dosage: 80 MILLIGRAM, QD (IN EVENING)
     Route: 065
  30. CHOLECALCIFEROL [Concomitant]
     Active Substance: CHOLECALCIFEROL
     Indication: PRODUCT USED FOR UNKNOWN INDICATION
     Dosage: 1000 INTERNATIONAL UNIT, QD (MORNING)
     Route: 065
  31. PACLITAXEL. [Suspect]
     Active Substance: PACLITAXEL
     Dosage: 80 MILLIGRAM/SQ. METER, TOTAL
     Route: 065
     Dates: start: 20190516, end: 20190516
  32. BISOPROLOL [Concomitant]
     Active Substance: BISOPROLOL
     Dosage: 2.5 MILLIGRAM, QD (AT NOON)
     Route: 065
     Dates: start: 201707, end: 201905
  33. VALSARTAN. [Suspect]
     Active Substance: VALSARTAN
     Indication: HYPERTENSION
     Dosage: 80 MILLIGRAM, QD
     Route: 065
     Dates: start: 201610, end: 2018
  34. VALSARTAN. [Suspect]
     Active Substance: VALSARTAN
     Dosage: 80 MG DAILY IN EVENING (PM)
     Route: 065
     Dates: start: 201412, end: 201804
  35. DICLOFENAC [Suspect]
     Active Substance: DICLOFENAC
     Indication: PRODUCT USED FOR UNKNOWN INDICATION
     Dosage: UNK
     Route: 065
  36. CYCLOPHOSPHAMID [Suspect]
     Active Substance: CYCLOPHOSPHAMIDE
     Dosage: 600 MILLIGRAM/SQ. METER, TOTAL
     Route: 065
     Dates: start: 20190411, end: 20190411
  37. PACLITAXEL. [Suspect]
     Active Substance: PACLITAXEL
     Indication: BREAST CANCER
     Dosage: 80 MILLIGRAM/SQ. METER, TOTAL
     Route: 065
     Dates: start: 20190704, end: 20190704
  38. PANTOPRAZOLE [Concomitant]
     Active Substance: PANTOPRAZOLE
     Indication: PRODUCT USED FOR UNKNOWN INDICATION
     Dosage: 20 MILLIGRAM, QD (DAILY MORNINGS)
     Route: 065
     Dates: start: 201412, end: 201905
  39. SELENE                             /01160601/ [Concomitant]
     Indication: PRODUCT USED FOR UNKNOWN INDICATION
     Dosage: 1 DOSAGE FORM, QD (MORNING)
     Route: 065
  40. CYCLOPHOSPHAMID [Suspect]
     Active Substance: CYCLOPHOSPHAMIDE
     Indication: BREAST CANCER
     Dosage: 600 MILLIGRAM/SQ. METER, TOTAL
     Route: 065
     Dates: start: 20190207, end: 20190207

REACTIONS (26)
  - Polyneuropathy [Unknown]
  - Cardiac failure [Unknown]
  - Respiratory failure [Unknown]
  - Blood pressure increased [Unknown]
  - Haematoma [Unknown]
  - Pulmonary embolism [Unknown]
  - Pulmonary oedema [Unknown]
  - Chest discomfort [Unknown]
  - Dyspnoea [Unknown]
  - Immunodeficiency [Unknown]
  - Pleural effusion [Unknown]
  - Acute myocardial infarction [Unknown]
  - Carotid arteriosclerosis [Unknown]
  - Asthenia [Unknown]
  - Leukopenia [Unknown]
  - Invasive ductal breast carcinoma [Not Recovered/Not Resolved]
  - Ejection fraction decreased [Unknown]
  - Drug intolerance [Unknown]
  - Hypotension [Unknown]
  - Fatigue [Unknown]
  - Pericardial effusion [Unknown]
  - Pneumonia [Unknown]
  - Hepatic steatosis [Unknown]
  - Cough [Unknown]
  - Eczema [Unknown]
  - Breast cancer [Not Recovered/Not Resolved]

NARRATIVE: CASE EVENT DATE: 2017
